FAERS Safety Report 9867923 (Version 2)
Quarter: 2014Q1

REPORT INFORMATION
  Report Type: Spontaneous
  Country: JP (occurrence: JP)
  Receive Date: 20140204
  Receipt Date: 20140210
  Transmission Date: 20141002
  Serious: Yes (Other)
  Sender: FDA-Public Use
  Company Number: JP-PFIZER INC-2014029837

PATIENT
  Age: 40 Year
  Sex: Male

DRUGS (1)
  1. SOLU-MEDROL [Suspect]
     Indication: IGA NEPHROPATHY
     Dosage: STEROID PULSE THERAPY
     Route: 042

REACTIONS (2)
  - Blood creatinine increased [Unknown]
  - Infection [Unknown]
